FAERS Safety Report 16484959 (Version 1)
Quarter: 2019Q2

REPORT INFORMATION
  Report Type: Spontaneous
  Country: US (occurrence: US)
  Receive Date: 20190516
  Receipt Date: 20190516
  Transmission Date: 20190711
  Serious: Yes (Hospitalization)
  Sender: FDA-Public Use
  Company Number: None

PATIENT
  Age: 40 Year
  Sex: Female
  Weight: 93 kg

DRUGS (4)
  1. CYCLOPHOSPHAMIDE. [Suspect]
     Active Substance: CYCLOPHOSPHAMIDE
     Dates: end: 20190305
  2. TAXOL [Suspect]
     Active Substance: PACLITAXEL
     Dates: end: 20190430
  3. DOXORUBICIN HYDROCHLORIDE. [Suspect]
     Active Substance: DOXORUBICIN HYDROCHLORIDE
     Dates: end: 20190305
  4. CARBOPLATIN. [Suspect]
     Active Substance: CARBOPLATIN
     Dates: end: 20190430

REACTIONS (13)
  - Metastases to liver [None]
  - Dizziness [None]
  - Vomiting [None]
  - Dehydration [None]
  - Blood magnesium decreased [None]
  - Nausea [None]
  - Sinus tachycardia [None]
  - Troponin increased [None]
  - Hepatic steatosis [None]
  - Dyspnoea exertional [None]
  - Myocardial ischaemia [None]
  - Chest discomfort [None]
  - Obesity [None]

NARRATIVE: CASE EVENT DATE: 20190503
